FAERS Safety Report 9684113 (Version 1)
Quarter: 2013Q4

REPORT INFORMATION
  Report Type: Spontaneous
  Country: US (occurrence: None)
  Receive Date: 20131111
  Receipt Date: 20131111
  Transmission Date: 20140711
  Serious: No
  Sender: FDA-Public Use
  Company Number: None

PATIENT
  Age: 78 Year
  Sex: Male
  Weight: 78.02 kg

DRUGS (1)
  1. ENOXAPARIN SODIUM [Suspect]
     Indication: DEEP VEIN THROMBOSIS
     Dosage: 1 CC SC TWICE DAILY GIVEN UNDER SKIN
     Route: 058
     Dates: start: 20131101, end: 20131103

REACTIONS (4)
  - Urticaria [None]
  - Rash generalised [None]
  - Therapeutic response unexpected with drug substitution [None]
  - Product substitution issue [None]
